FAERS Safety Report 17075745 (Version 6)
Quarter: 2020Q1

REPORT INFORMATION
  Report Type: Spontaneous
  Country: AU (occurrence: AU)
  Receive Date: 20191126
  Receipt Date: 20200330
  Transmission Date: 20200409
  Serious: Yes (Hospitalization)
  Sender: FDA-Public Use
  Company Number: AU-CELGENEUS-AUS-20191107207

PATIENT
  Age: 51 Year
  Sex: Female
  Weight: 70 kg

DRUGS (36)
  1. ABRAXANE [Suspect]
     Active Substance: PACLITAXEL
     Route: 041
     Dates: start: 20191230, end: 20191230
  2. ABRAXANE [Suspect]
     Active Substance: PACLITAXEL
     Route: 041
     Dates: start: 20200128, end: 20200128
  3. GEMCITABINE. [Concomitant]
     Active Substance: GEMCITABINE
     Route: 041
     Dates: start: 20200107, end: 20200107
  4. GEMCITABINE. [Concomitant]
     Active Substance: GEMCITABINE
     Route: 041
     Dates: start: 20200114, end: 20200114
  5. MEDI4736 [Concomitant]
     Active Substance: DURVALUMAB
     Indication: DUCTAL ADENOCARCINOMA OF PANCREAS
     Route: 042
     Dates: start: 20191104, end: 20191104
  6. MEDI4736 [Concomitant]
     Active Substance: DURVALUMAB
     Route: 042
     Dates: start: 20191203, end: 20191203
  7. PARACETAMOL [Concomitant]
     Active Substance: ACETAMINOPHEN
     Indication: NECK PAIN
     Route: 065
     Dates: start: 201910, end: 20191108
  8. ABRAXANE [Suspect]
     Active Substance: PACLITAXEL
     Route: 041
     Dates: start: 20191203, end: 20191203
  9. MEDI9947 [Concomitant]
     Route: 042
     Dates: start: 20191203, end: 20191203
  10. GEMCITABINE. [Concomitant]
     Active Substance: GEMCITABINE
     Route: 041
     Dates: start: 20191230, end: 20191230
  11. PANADEINE FORTE [Concomitant]
     Active Substance: ACETAMINOPHEN\CODEINE PHOSPHATE
     Indication: NECK PAIN
     Route: 048
     Dates: start: 201910, end: 20191108
  12. DIAZEPAM. [Concomitant]
     Active Substance: DIAZEPAM
     Indication: NECK PAIN
     Route: 048
     Dates: start: 201910
  13. CODEINE [Concomitant]
     Active Substance: CODEINE
     Indication: PRODUCT USED FOR UNKNOWN INDICATION
     Route: 065
  14. MEDI9947 [Concomitant]
     Route: 042
     Dates: start: 20200225, end: 20200225
  15. GEMCITABINE. [Concomitant]
     Active Substance: GEMCITABINE
     Route: 041
     Dates: start: 20191210, end: 20191210
  16. GEMCITABINE. [Concomitant]
     Active Substance: GEMCITABINE
     Route: 041
     Dates: start: 20200128, end: 20200128
  17. ABRAXANE [Suspect]
     Active Substance: PACLITAXEL
     Route: 041
     Dates: start: 20200107, end: 20200107
  18. ABRAXANE [Suspect]
     Active Substance: PACLITAXEL
     Route: 041
     Dates: start: 20200114, end: 20200114
  19. ABRAXANE [Suspect]
     Active Substance: PACLITAXEL
     Route: 041
     Dates: start: 20200225, end: 20200225
  20. ABRAXANE [Suspect]
     Active Substance: PACLITAXEL
     Route: 041
     Dates: start: 20200303, end: 20200303
  21. GEMCITABINE. [Concomitant]
     Active Substance: GEMCITABINE
     Indication: DUCTAL ADENOCARCINOMA OF PANCREAS
     Route: 041
     Dates: start: 20191104, end: 20191104
  22. MACROGOL [Concomitant]
     Active Substance: POLYETHYLENE GLYCOLS
     Indication: CONSTIPATION PROPHYLAXIS
     Dosage: 1 SACHET
     Route: 048
     Dates: start: 201910
  23. MEDI4736 [Concomitant]
     Active Substance: DURVALUMAB
     Dosage: 53.5714 MILLIGRAM
     Route: 042
     Dates: start: 20200128, end: 20200225
  24. ABRAXANE [Suspect]
     Active Substance: PACLITAXEL
     Route: 041
     Dates: start: 20191210, end: 20191210
  25. PREDNISOLONE. [Concomitant]
     Active Substance: PREDNISOLONE
     Indication: PRODUCT USED FOR UNKNOWN INDICATION
     Route: 065
  26. GEMCITABINE. [Concomitant]
     Active Substance: GEMCITABINE
     Route: 041
     Dates: start: 20200225, end: 20200225
  27. GEMCITABINE. [Concomitant]
     Active Substance: GEMCITABINE
     Route: 041
     Dates: start: 20200303, end: 20200303
  28. NUROFEN [Concomitant]
     Active Substance: IBUPROFEN
     Indication: NECK PAIN
     Route: 048
     Dates: start: 201910
  29. MEDI9947 [Concomitant]
     Route: 042
     Dates: start: 20191217, end: 20191217
  30. MEDI9947 [Concomitant]
     Route: 042
     Dates: start: 20191230, end: 20191230
  31. MEDI9947 [Concomitant]
     Route: 042
     Dates: start: 20200128, end: 20200128
  32. GEMCITABINE. [Concomitant]
     Active Substance: GEMCITABINE
     Route: 041
     Dates: start: 20191203, end: 20191203
  33. TEMAZEPAM. [Concomitant]
     Active Substance: TEMAZEPAM
     Indication: INSOMNIA
     Route: 048
     Dates: start: 201910
  34. ABRAXANE [Suspect]
     Active Substance: PACLITAXEL
     Indication: DUCTAL ADENOCARCINOMA OF PANCREAS
     Route: 041
     Dates: start: 20191104, end: 20191104
  35. MEDI9947 [Concomitant]
     Indication: DUCTAL ADENOCARCINOMA OF PANCREAS
     Route: 042
     Dates: start: 20191104, end: 20191104
  36. MEDI4736 [Concomitant]
     Active Substance: DURVALUMAB
     Route: 042
     Dates: start: 20191230, end: 20191230

REACTIONS (2)
  - Bacteraemia [Recovered/Resolved]
  - Hepatitis [Recovering/Resolving]

NARRATIVE: CASE EVENT DATE: 20191106
